FAERS Safety Report 9473133 (Version 1)
Quarter: 2013Q3

REPORT INFORMATION
  Report Type: Spontaneous
  Country: US (occurrence: None)
  Receive Date: 20130820
  Receipt Date: 20130820
  Transmission Date: 20140515
  Serious: Yes (Other)
  Sender: FDA-Public Use
  Company Number: SYM-2013-08977

PATIENT
  Age: 75 Year
  Sex: Female
  Weight: 41.73 kg

DRUGS (4)
  1. XENAZINE [Suspect]
     Indication: DYSKINESIA
     Dosage: 1 IN 1 DAY, AT BEDTIME
     Dates: start: 20130807, end: 20130808
  2. EVISTA (RALOXIFENE HYDROCHLORIDE) [Concomitant]
  3. DILTIAZEM [Concomitant]
  4. ASPIRIN [Concomitant]

REACTIONS (1)
  - Suicidal ideation [None]
